FAERS Safety Report 5334001-6 (Version None)
Quarter: 2007Q2

REPORT INFORMATION
  Report Type: 
  Country: None (occurrence: None)
  Receive Date: 20070524
  Receipt Date: 20070515
  Transmission Date: 20071010
  Serious: Yes (Hospitalization)
  Sender: FDA-Public Use
  Company Number: CA-PFIZER INC-2007038871

PATIENT
  Sex: Male
  Weight: 82 kg

DRUGS (8)
  1. TIKOSYN [Suspect]
     Indication: ARRHYTHMIA
  2. CARVEDILOL [Concomitant]
     Dosage: DAILY DOSE:50MG
  3. FOLIC ACID [Concomitant]
  4. WARFARIN SODIUM [Concomitant]
  5. FUROSEMIDE [Concomitant]
  6. PROSCAR [Concomitant]
  7. VASOTEC [Concomitant]
  8. ASPIRIN [Concomitant]

REACTIONS (2)
  - ANAEMIA [None]
  - RASH MACULO-PAPULAR [None]
